FAERS Safety Report 8859296 (Version 1)
Quarter: 2012Q4

REPORT INFORMATION
  Report Type: 
  Country: US (occurrence: US)
  Receive Date: 20121024
  Receipt Date: 20121024
  Transmission Date: 20130627
  Serious: No
  Sender: FDA-Public Use
  Company Number: US-ASTRAZENECA-2012SE17760

PATIENT
  Age: 74 Year
  Sex: Female

DRUGS (7)
  1. METOPROLOL SUCCINATE [Suspect]
     Route: 048
  2. LEVOXYL [Concomitant]
  3. BENICAR [Concomitant]
     Indication: BLOOD PRESSURE INCREASED
  4. INSULIN [Concomitant]
     Indication: DIABETES MELLITUS
  5. ASPIRIN [Concomitant]
  6. FLINTSTONES [Concomitant]
  7. COREG [Concomitant]

REACTIONS (1)
  - Cough [Unknown]
